FAERS Safety Report 17265141 (Version 1)
Quarter: 2020Q1

REPORT INFORMATION
  Report Type: Report from Study
  Country: US (occurrence: US)
  Receive Date: 20200113
  Receipt Date: 20200113
  Transmission Date: 20200409
  Serious: Yes (Other)
  Sender: FDA-Public Use
  Company Number: US-TEVA-2020-US-1165770

PATIENT
  Sex: Male

DRUGS (1)
  1. COPAXONE [Suspect]
     Active Substance: GLATIRAMER ACETATE
     Dosage: FORM STRENGTH: UNKNOWN

REACTIONS (10)
  - Dyspnoea [Recovered/Resolved]
  - Injection site urticaria [Unknown]
  - Injection site bruising [Unknown]
  - Obstructive airways disorder [Unknown]
  - Injection site pruritus [Unknown]
  - Poor quality sleep [Unknown]
  - Throat tightness [Recovered/Resolved]
  - Injection site mass [Unknown]
  - Injection site rash [Unknown]
  - Injection site pain [Unknown]
